FAERS Safety Report 7345429-7 (Version None)
Quarter: 2011Q1

REPORT INFORMATION
  Report Type: 
  Country: None (occurrence: None)
  Receive Date: 20110310
  Receipt Date: 20110307
  Transmission Date: 20110831
  Serious: Yes (Life-Threatening, Hospitalization, Other)
  Sender: FDA-Public Use
  Company Number: DE-ABBOTT-11P-062-0703326-00

PATIENT
  Age: 68 Year
  Sex: Male
  Weight: 72 kg

DRUGS (7)
  1. HUMIRA [Suspect]
     Route: 058
     Dates: start: 20071201, end: 20090901
  2. METHOTREXATE [Concomitant]
     Indication: PRODUCT USED FOR UNKNOWN INDICATION
     Dates: start: 20011001, end: 20090901
  3. INFLIXIMAB [Concomitant]
     Indication: PRODUCT USED FOR UNKNOWN INDICATION
     Dosage: 300/900MG
     Dates: start: 20020101, end: 20040801
  4. HUMIRA [Suspect]
     Route: 058
     Dates: start: 20041001, end: 20050501
  5. LEFLUNOMIDE [Concomitant]
     Indication: PRODUCT USED FOR UNKNOWN INDICATION
     Dates: start: 20010801, end: 20011001
  6. HUMIRA [Suspect]
     Indication: RHEUMATOID ARTHRITIS
     Route: 058
     Dates: start: 20050801, end: 20071101
  7. METHOTREXATE [Concomitant]
     Dates: start: 20021001, end: 20090901

REACTIONS (14)
  - CARDIAC OPERATION [None]
  - NEUTROPENIA [None]
  - FALL [None]
  - WEIGHT DECREASED [None]
  - SYNCOPE [None]
  - ATRIAL FIBRILLATION [None]
  - NON-HODGKIN'S LYMPHOMA [None]
  - HYPOTENSION [None]
  - ILL-DEFINED DISORDER [None]
  - PERICARDIAL EFFUSION [None]
  - ASTHENIA [None]
  - TACHYARRHYTHMIA [None]
  - C-REACTIVE PROTEIN INCREASED [None]
  - LEUKOCYTOSIS [None]
